FAERS Safety Report 7883709-7 (Version None)
Quarter: 2011Q4

REPORT INFORMATION
  Report Type: 
  Country: None (occurrence: None)
  Receive Date: 20111102
  Receipt Date: 20111018
  Transmission Date: 20120403
  Serious: Yes (Hospitalization)
  Sender: FDA-Public Use
  Company Number: AU-JNJFOC-20111008185

PATIENT
  Sex: Male

DRUGS (5)
  1. ZYPREXA [Suspect]
     Route: 065
     Dates: start: 20101108
  2. INVEGA SUSTENNA [Suspect]
     Route: 030
     Dates: start: 20101029
  3. ZYPREXA [Suspect]
     Indication: PRODUCT USED FOR UNKNOWN INDICATION
     Route: 065
     Dates: start: 20101108
  4. ZYPREXA [Suspect]
     Route: 065
     Dates: start: 20101029
  5. INVEGA SUSTENNA [Suspect]
     Indication: PRODUCT USED FOR UNKNOWN INDICATION
     Route: 030
     Dates: start: 20110811

REACTIONS (2)
  - CONDITION AGGRAVATED [None]
  - CONFUSIONAL STATE [None]
